FAERS Safety Report 19761780 (Version 1)
Quarter: 2021Q3

REPORT INFORMATION
  Report Type: Spontaneous
  Country: US (occurrence: US)
  Receive Date: 20210828
  Receipt Date: 20210828
  Transmission Date: 20211014
  Serious: Yes (Disabling)
  Sender: FDA-Public Use
  Company Number: None

PATIENT
  Age: 29 Year
  Sex: Female
  Weight: 58.5 kg

DRUGS (3)
  1. TRIAMCINOLONE [Suspect]
     Active Substance: TRIAMCINOLONE
     Indication: ECZEMA
     Dates: start: 20190311, end: 20210130
  2. BETAMETHASONE. [Suspect]
     Active Substance: BETAMETHASONE
  3. PREDNISONE. [Suspect]
     Active Substance: PREDNISONE

REACTIONS (3)
  - Pain [None]
  - Drug withdrawal syndrome [None]
  - Condition aggravated [None]

NARRATIVE: CASE EVENT DATE: 20210130
